FAERS Safety Report 7424029-4 (Version None)
Quarter: 2011Q2

REPORT INFORMATION
  Report Type: 
  Country: None (occurrence: None)
  Receive Date: 20110419
  Receipt Date: 20101207
  Transmission Date: 20111010
  Serious: Yes (Hospitalization, Other)
  Sender: FDA-Public Use
  Company Number: US-BAYER-201016024NA

PATIENT
  Age: 26 Year
  Sex: Female
  Weight: 54.422 kg

DRUGS (8)
  1. LEVAQUIN [Concomitant]
  2. VICODIN [Concomitant]
  3. YAZ [Suspect]
     Indication: CONTRACEPTION
     Dosage: UNK UNK, UNK
     Route: 048
     Dates: start: 20060501, end: 20091001
  4. NSAID'S [Concomitant]
     Dosage: UNK
     Dates: start: 20000101, end: 20100101
  5. I.V. SOLUTIONS [Concomitant]
  6. POTASSIUM [POTASSIUM] [Concomitant]
  7. NICODERM [Concomitant]
  8. YASMIN [Suspect]
     Indication: PRODUCT USED FOR UNKNOWN INDICATION
     Route: 048

REACTIONS (6)
  - CHOLECYSTITIS CHRONIC [None]
  - ABDOMINAL PAIN UPPER [None]
  - BACK PAIN [None]
  - CHOLELITHIASIS [None]
  - BILE DUCT STONE [None]
  - CHOLECYSTITIS ACUTE [None]
